FAERS Safety Report 4869531-4 (Version None)
Quarter: 2005Q4

REPORT INFORMATION
  Report Type: 
  Country: None (occurrence: None)
  Receive Date: 20051227
  Receipt Date: 20051216
  Transmission Date: 20060501
  Serious: Yes (Other)
  Sender: FDA-Public Use
  Company Number: 2005-07-0945

PATIENT
  Age: 50 Year
  Sex: Male
  Weight: 56 kg

DRUGS (2)
  1. PEG-INTRON [Suspect]
     Indication: HEPATITIS C
     Dosage: 80 MCG WEEKLY SUBCUTANEO
     Route: 058
     Dates: start: 20010914, end: 20020331
  2. REBETOL [Suspect]
     Indication: HEPATITIS C
     Dosage: 800 MG ORAL
     Route: 048
     Dates: start: 20020914, end: 20030314

REACTIONS (2)
  - AUTOIMMUNE DISORDER [None]
  - PEYRONIE'S DISEASE [None]
